FAERS Safety Report 8380889-4 (Version None)
Quarter: 2012Q2

REPORT INFORMATION
  Report Type: 
  Country: None (occurrence: None)
  Receive Date: 20120523
  Receipt Date: 20120511
  Transmission Date: 20120825
  Serious: Yes (Other)
  Sender: FDA-Public Use
  Company Number: JP-MERCK-1205USA01407

PATIENT
  Age: 56 Year
  Sex: Male

DRUGS (4)
  1. PROPECIA [Suspect]
     Route: 048
     Dates: start: 20120308, end: 20120322
  2. DIGOXIN [Concomitant]
     Indication: ATRIAL FIBRILLATION
     Route: 048
  3. PROPECIA [Suspect]
     Indication: ANDROGENETIC ALOPECIA
     Route: 048
     Dates: start: 20111115, end: 20120208
  4. WARFARIN POTASSIUM [Concomitant]
     Indication: ATRIAL FIBRILLATION
     Route: 048

REACTIONS (2)
  - VERTIGO [None]
  - DIZZINESS [None]
